FAERS Safety Report 5796480-X (Version None)
Quarter: 2008Q3

REPORT INFORMATION
  Report Type: 
  Country: None (occurrence: None)
  Receive Date: 20080701
  Receipt Date: 20080627
  Transmission Date: 20090109
  Serious: Yes (Disabling)
  Sender: FDA-Public Use
  Company Number: US-BRISTOL-MYERS SQUIBB COMPANY-14113153

PATIENT
  Age: 64 Year
  Sex: Female

DRUGS (7)
  1. ERBITUX [Suspect]
     Indication: COLON CANCER METASTATIC
     Dosage: FIRST DOSE 400 MG/M2
     Route: 042
     Dates: start: 20070614, end: 20071205
  2. ZYRTEC [Concomitant]
  3. MECLIZINE [Concomitant]
  4. ATARAX [Concomitant]
  5. PHENERGAN W/ CODEINE [Concomitant]
  6. COUMADIN [Concomitant]
  7. PROCRIT [Concomitant]

REACTIONS (2)
  - ERYTHEMA [None]
  - LEUKOCYTOCLASTIC VASCULITIS [None]
